FAERS Safety Report 5600867-5 (Version None)
Quarter: 2008Q1

REPORT INFORMATION
  Report Type: 
  Country: None (occurrence: None)
  Receive Date: 20080122
  Receipt Date: 20080122
  Transmission Date: 20080703
  Serious: Yes (Life-Threatening)
  Sender: FDA-Public Use
  Company Number: None

PATIENT
  Sex: Male
  Weight: 6.375 kg

DRUGS (6)
  1. SYNAGIS [Suspect]
     Indication: ANTIVIRAL PROPHYLAXIS
     Dosage: 90MG ONCE IM
     Route: 030
     Dates: start: 20080114
  2. ALBUTEROL HFN [Concomitant]
  3. PULMOZYME [Concomitant]
  4. CREON 5 [Concomitant]
  5. ZANTAC [Concomitant]
  6. SEPTRA [Concomitant]

REACTIONS (3)
  - APNOEA [None]
  - CYANOSIS [None]
  - HEART RATE ABNORMAL [None]
